FAERS Safety Report 20557068 (Version 1)
Quarter: 2022Q1

REPORT INFORMATION
  Report Type: Spontaneous
  Country: US (occurrence: US)
  Receive Date: 20220307
  Receipt Date: 20220307
  Transmission Date: 20220424
  Serious: No
  Sender: FDA-Public Use
  Company Number: US-AUROBINDO-AUR-APL-2021-027148

PATIENT
  Age: 76 Year
  Sex: Male
  Weight: 59.4 kg

DRUGS (2)
  1. METFORMIN HYDROCHLORIDE [Suspect]
     Active Substance: METFORMIN HYDROCHLORIDE
     Indication: Diabetes mellitus
     Dosage: 2 DOSAGE FORM
     Route: 065
  2. METFORMIN HYDROCHLORIDE [Suspect]
     Active Substance: METFORMIN HYDROCHLORIDE
     Dosage: 2 DOSAGE FORM, DAILY
     Route: 065
     Dates: start: 20210617

REACTIONS (5)
  - Product contamination physical [Unknown]
  - Wrong technique in product usage process [Unknown]
  - Product quality issue [Unknown]
  - Product physical consistency issue [Unknown]
  - Poor quality product administered [Unknown]

NARRATIVE: CASE EVENT DATE: 20210617
